FAERS Safety Report 4832156-0 (Version None)
Quarter: 2005Q4

REPORT INFORMATION
  Report Type: 
  Country: None (occurrence: None)
  Receive Date: 20051114
  Receipt Date: 20001110
  Transmission Date: 20060501
  Serious: Yes (Hospitalization)
  Sender: FDA-Public Use
  Company Number: WAES 00095585

PATIENT
  Age: 24 Year
  Sex: Female

DRUGS (7)
  1. SINGULAIR [Suspect]
     Indication: ASTHMA
     Dosage: 10 MG/DAILY/PO
     Route: 048
     Dates: start: 19980202, end: 19990117
  2. BECLOMETHASONE DIPROPIONATE [Concomitant]
  3. CROMOLYN SODIUM [Concomitant]
  4. FORMOTEROL FUMARATE [Concomitant]
  5. HOMEOPATHIC MEDICATIONS [Concomitant]
  6. PREDNISONE [Concomitant]
  7. THEOPHYLLINE [Concomitant]

REACTIONS (20)
  - ACUTE SINUSITIS [None]
  - ALLERGIC GRANULOMATOUS ANGIITIS [None]
  - ASTHMA [None]
  - BLOOD IMMUNOGLOBULIN E INCREASED [None]
  - BLOOD LACTATE DEHYDROGENASE INCREASED [None]
  - CARDIAC FAILURE [None]
  - CONGESTIVE CARDIOMYOPATHY [None]
  - EOSINOPHIL PERCENTAGE INCREASED [None]
  - EPSTEIN-BARR VIRUS ANTIBODY POSITIVE [None]
  - FEBRILE INFECTION [None]
  - GENERAL PHYSICAL HEALTH DETERIORATION [None]
  - HYPEREOSINOPHILIC SYNDROME [None]
  - HYPERSENSITIVITY [None]
  - MYOCARDITIS [None]
  - NASAL POLYPECTOMY [None]
  - PLATELET COUNT DECREASED [None]
  - PNEUMONIA STAPHYLOCOCCAL [None]
  - SALIVARY GLAND ENLARGEMENT [None]
  - VENTRICULAR DYSFUNCTION [None]
  - WHITE BLOOD CELL COUNT INCREASED [None]
